FAERS Safety Report 8877660 (Version 2)
Quarter: 2012Q4

REPORT INFORMATION
  Report Type: 
  Country: US (occurrence: US)
  Receive Date: 20121024
  Receipt Date: 20121101
  Transmission Date: 20130627
  Serious: Yes (Other)
  Sender: FDA-Public Use
  Company Number: US-009507513-1210USA004404

PATIENT
  Sex: Female
  Weight: 53.52 kg

DRUGS (7)
  1. REMERON [Suspect]
     Indication: DEPRESSION
     Dosage: 7.5 mg, qd
     Route: 048
     Dates: start: 201205
  2. XANAX [Suspect]
     Indication: DEPRESSION
     Dosage: 0.25 mg, tid
     Route: 048
     Dates: start: 201205
  3. LOPRESSOR [Concomitant]
     Dosage: UNK
  4. EFFEXOR [Concomitant]
     Dosage: UNK
  5. PANTOPRAZOLE [Concomitant]
     Dosage: UNK
  6. Z-BEC (ASCORBIC ACID (+) VITAMIN B COMPLEX (+) VITAMIN E (+) ZINC OXID [Concomitant]
     Dosage: UNK
  7. DIOVAN [Concomitant]
     Dosage: UNK

REACTIONS (2)
  - Incontinence [Not Recovered/Not Resolved]
  - Pollakiuria [Not Recovered/Not Resolved]
